FAERS Safety Report 5146277-9 (Version None)
Quarter: 2006Q4

REPORT INFORMATION
  Report Type: 
  Country: None (occurrence: None)
  Receive Date: 20061108
  Receipt Date: 20061031
  Transmission Date: 20070319
  Serious: Yes (Hospitalization)
  Sender: FDA-Public Use
  Company Number: JP-NOVOPROD-258259

PATIENT
  Age: 64 Year
  Sex: Male
  Weight: 56 kg

DRUGS (9)
  1. NOVORAPID CHU [Suspect]
     Indication: INSULIN-REQUIRING TYPE II DIABETES MELLITUS
     Dosage: UNK, UNK
     Route: 058
     Dates: start: 20050906
  2. NOVOLIN R [Suspect]
     Indication: INSULIN-REQUIRING TYPE II DIABETES MELLITUS
     Dosage: 9-30 UNITS
     Route: 058
     Dates: start: 20050930, end: 20060801
  3. NOVOLIN N [Suspect]
     Indication: INSULIN-REQUIRING TYPE II DIABETES MELLITUS
     Dosage: 8 U, QD
     Route: 058
     Dates: start: 20050910, end: 20060801
  4. AMLODIPINE BESYLATE [Concomitant]
     Route: 048
  5. LASIX [Concomitant]
     Route: 048
  6. DIOVAN                             /01319601/ [Concomitant]
     Route: 048
  7. LIVALO [Concomitant]
     Route: 048
     Dates: start: 20050901
  8. ARTIST [Concomitant]
     Route: 048
     Dates: start: 20060801
  9. BASEN [Concomitant]
     Route: 048
     Dates: start: 20061012

REACTIONS (2)
  - ANTI-INSULIN ANTIBODY INCREASED [None]
  - DIABETES MELLITUS INADEQUATE CONTROL [None]
